FAERS Safety Report 14447852 (Version 4)
Quarter: 2018Q1

REPORT INFORMATION
  Report Type: Spontaneous
  Country: FR (occurrence: FR)
  Receive Date: 20180126
  Receipt Date: 20180228
  Transmission Date: 20180509
  Serious: Yes (Hospitalization)
  Sender: FDA-Public Use
  Company Number: FR-ACORDA-ACO_146029_2018

PATIENT
  Age: 58 Year
  Sex: Female

DRUGS (1)
  1. QUTENZA [Suspect]
     Active Substance: CAPSAICIN
     Indication: NEURALGIA
     Dosage: 1 DF, UNK
     Route: 003
     Dates: start: 20180110, end: 20180110

REACTIONS (3)
  - Inappropriate schedule of drug administration [Not Recovered/Not Resolved]
  - Application site burn [Not Recovered/Not Resolved]
  - Product formulation issue [Not Recovered/Not Resolved]

NARRATIVE: CASE EVENT DATE: 20180110
